FAERS Safety Report 5810980-5 (Version None)
Quarter: 2008Q3

REPORT INFORMATION
  Report Type: 
  Country: None (occurrence: None)
  Receive Date: 20080710
  Receipt Date: 20080627
  Transmission Date: 20090109
  Serious: Yes (Death, Other)
  Sender: FDA-Public Use
  Company Number: 50101

PATIENT
  Sex: Male

DRUGS (1)
  1. AMLODARONE HCL INJ. 150MG/3ML - BEDFORD LABS, INC. [Suspect]

REACTIONS (3)
  - CARDIAC INFECTION [None]
  - POST PROCEDURAL INFECTION [None]
  - STAPHYLOCOCCAL INFECTION [None]
